FAERS Safety Report 4796741-7 (Version None)
Quarter: 2005Q4

REPORT INFORMATION
  Report Type: 
  Country: None (occurrence: None)
  Receive Date: 20051007
  Receipt Date: 20050922
  Transmission Date: 20060501
  Serious: Yes (Death, Hospitalization, Other)
  Sender: FDA-Public Use
  Company Number: 2005-US-00232

PATIENT
  Age: 81 Year
  Sex: Female

DRUGS (6)
  1. CIPROFLOXACIN [Suspect]
     Indication: RESPIRATORY TRACT INFECTION
  2. FUROSEMIDE [Suspect]
     Indication: HYPERTENSION
  3. GLYCERYL TRINITRATE [Suspect]
     Indication: CARDIAC FAILURE
  4. CELECOXIB [Suspect]
  5. RAMIPRIL [Suspect]
     Indication: HYPERTENSION
  6. AMOXICILLIN AND CLAVULANATE POTASSIUM [Concomitant]

REACTIONS (9)
  - DEHYDRATION [None]
  - HAEMODIALYSIS [None]
  - IATROGENIC INJURY [None]
  - NEPHROPATHY TOXIC [None]
  - RENAL FAILURE ACUTE [None]
  - SOMNOLENCE [None]
  - TUBULOINTERSTITIAL NEPHRITIS [None]
  - VASCULITIS [None]
  - VASODILATATION [None]
